FAERS Safety Report 12770972 (Version 2)
Quarter: 2016Q4

REPORT INFORMATION
  Report Type: Spontaneous
  Country: US (occurrence: US)
  Receive Date: 20160922
  Receipt Date: 20161010
  Transmission Date: 20170207
  Serious: Yes (Life-Threatening)
  Sender: FDA-Public Use
  Company Number: US-PFIZER INC-2016436604

PATIENT
  Age: 18 Year
  Sex: Male
  Weight: 74.84 kg

DRUGS (2)
  1. ZOLOFT [Suspect]
     Active Substance: SERTRALINE HYDROCHLORIDE
     Indication: DEPRESSED MOOD
     Dosage: 50 MG, DAILY [1/2 TABLET]
  2. ZOLOFT [Suspect]
     Active Substance: SERTRALINE HYDROCHLORIDE
     Indication: ANXIETY
     Dosage: 100 MG, DAILY
     Route: 048
     Dates: start: 20160309

REACTIONS (2)
  - Muscle twitching [Recovered/Resolved]
  - Tic [Recovered/Resolved]

NARRATIVE: CASE EVENT DATE: 20160915
